FAERS Safety Report 11780705 (Version 1)
Quarter: 2015Q4

REPORT INFORMATION
  Report Type: Report from Study
  Country: BR (occurrence: BR)
  Receive Date: 20151126
  Receipt Date: 20151126
  Transmission Date: 20160305
  Serious: Yes (Death, Hospitalization)
  Sender: FDA-Public Use
  Company Number: BR-ROCHE-1497768

PATIENT
  Age: 69 Year
  Sex: Female
  Weight: 63 kg

DRUGS (6)
  1. MABTHERA [Suspect]
     Active Substance: RITUXIMAB
     Indication: RHEUMATOID ARTHRITIS
     Dosage: MOST RECENT INFUSION 10/JUN/2014 AND 15/JAN/2015
     Route: 042
     Dates: start: 20121215, end: 20150115
  2. DIOVAN [Concomitant]
     Active Substance: VALSARTAN
  3. AMARYL [Concomitant]
     Active Substance: GLIMEPIRIDE
  4. CORTISONE [Concomitant]
     Active Substance: CORTISONE\HYDROCORTISONE
  5. MABTHERA [Suspect]
     Active Substance: RITUXIMAB
     Dosage: SECOND CYCLE
     Route: 042
     Dates: start: 2013
  6. CARVEDILOL. [Concomitant]
     Active Substance: CARVEDILOL

REACTIONS (2)
  - Femur fracture [Not Recovered/Not Resolved]
  - Thrombosis [Fatal]

NARRATIVE: CASE EVENT DATE: 201411
